FAERS Safety Report 7625506-3 (Version None)
Quarter: 2011Q3

REPORT INFORMATION
  Report Type: 
  Country: None (occurrence: None)
  Receive Date: 20110721
  Receipt Date: 20101029
  Transmission Date: 20111222
  Serious: No
  Sender: FDA-Public Use
  Company Number: US-KINGPHARMUSA00001-K201001339

PATIENT
  Sex: Male

DRUGS (1)
  1. SEPTRA [Suspect]
     Indication: PROSTATITIS
     Dosage: UNK BID
     Route: 048
     Dates: start: 20101020

REACTIONS (4)
  - PYREXIA [None]
  - NASAL CONGESTION [None]
  - INFLUENZA LIKE ILLNESS [None]
  - PAIN [None]
